FAERS Safety Report 9765149 (Version 1)
Quarter: 2013Q4

REPORT INFORMATION
  Report Type: Spontaneous
  Country: US (occurrence: US)
  Receive Date: 20131217
  Receipt Date: 20131217
  Transmission Date: 20140711
  Serious: No
  Sender: FDA-Public Use
  Company Number: US-GLAXOSMITHKLINE-A1000198A

PATIENT
  Sex: Male

DRUGS (5)
  1. VOTRIENT [Suspect]
     Indication: RENAL CANCER
     Dosage: 200MG SEE DOSAGE TEXT
     Route: 065
  2. METOPROLOL [Concomitant]
     Indication: HYPERTENSION
     Route: 065
  3. PRILOSEC [Concomitant]
  4. PROCHLORPERAZINE [Concomitant]
  5. LORAZEPAM [Concomitant]

REACTIONS (11)
  - Hypertension [Recovered/Resolved]
  - Nausea [Unknown]
  - Abdominal discomfort [Unknown]
  - Hair colour changes [Unknown]
  - Fatigue [Not Recovered/Not Resolved]
  - Gastric disorder [Unknown]
  - Abdominal pain upper [Unknown]
  - Vomiting [Unknown]
  - Decreased appetite [Unknown]
  - Myalgia [Unknown]
  - Hypothyroidism [Unknown]
